FAERS Safety Report 14288578 (Version 1)
Quarter: 2017Q4

REPORT INFORMATION
  Report Type: Spontaneous
  Country: FR (occurrence: FR)
  Receive Date: 20171215
  Receipt Date: 20171215
  Transmission Date: 20180321
  Serious: Yes (Other)
  Sender: FDA-Public Use
  Company Number: FR-ASTRAZENECA-2017SF25432

PATIENT
  Age: 25 Year
  Sex: Male
  Weight: 61 kg

DRUGS (3)
  1. VENTOLINE [Concomitant]
     Active Substance: ALBUTEROL
     Indication: ASTHMATIC CRISIS
  2. PEPSANE [Suspect]
     Active Substance: DIMETHICONE\GUAIAZULENE
     Indication: GASTROOESOPHAGEAL REFLUX DISEASE
     Dosage: 0.5, 1 OR 2 SACHETS PER DAY
     Route: 048
     Dates: start: 2017
  3. INEXIUM [Suspect]
     Active Substance: ESOMEPRAZOLE
     Dosage: UNKNOWN DOSE AND FREQUENCY
     Route: 048

REACTIONS (2)
  - Intentional product misuse [Recovered/Resolved]
  - Asthma [Recovered/Resolved]
